FAERS Safety Report 14372089 (Version 1)
Quarter: 2018Q1

REPORT INFORMATION
  Report Type: Spontaneous
  Country: US (occurrence: US)
  Receive Date: 20180110
  Receipt Date: 20180110
  Transmission Date: 20180509
  Serious: Yes (Death)
  Sender: FDA-Public Use
  Company Number: US-SA-2018SA004016

PATIENT
  Age: 30 Year
  Sex: Male

DRUGS (4)
  1. FENTANYL. [Suspect]
     Active Substance: FENTANYL
     Route: 065
  2. CARFENTANIL CITRATE [Suspect]
     Active Substance: CARFENTANIL CITRATE
     Route: 065
  3. DIPHENHYDRAMINE. [Suspect]
     Active Substance: DIPHENHYDRAMINE
     Route: 065
  4. SERTRALINE [Concomitant]
     Active Substance: SERTRALINE HYDROCHLORIDE

REACTIONS (4)
  - Toxicity to various agents [Fatal]
  - Unresponsive to stimuli [None]
  - Pneumonia [Fatal]
  - Foaming at mouth [None]
